FAERS Safety Report 5566653-X (Version None)
Quarter: 2007Q4

REPORT INFORMATION
  Report Type: 
  Country: None (occurrence: None)
  Receive Date: 20071219
  Receipt Date: 20071207
  Transmission Date: 20080405
  Serious: Yes (Hospitalization)
  Sender: FDA-Public Use
  Company Number: FI-ELI_LILLY_AND_COMPANY-FI200712001376

PATIENT
  Age: 70 Year
  Sex: Male
  Weight: 104 kg

DRUGS (4)
  1. GEMZAR [Suspect]
     Indication: ADENOCARCINOMA
     Dosage: 2000MG ON DAY 1 OF 28 DAY CYCLE
     Route: 042
     Dates: start: 20070209, end: 20070209
  2. GEMZAR [Suspect]
     Dosage: 1800 MG ON DAY 8 OF 28 DAY CYCLE
     Route: 042
     Dates: start: 20070216, end: 20070216
  3. GEMZAR [Suspect]
     Dosage: UNK, UNKNOWN
     Route: 042
     Dates: end: 20070701
  4. ANTIARRHYTHMICS, CLASS I AND III [Concomitant]
     Indication: ARRHYTHMIA
     Dosage: UNK, UNKNOWN

REACTIONS (5)
  - CHEST DISCOMFORT [None]
  - DYSPNOEA [None]
  - NEUTROPENIA [None]
  - PITTING OEDEMA [None]
  - THROMBOCYTOPENIA [None]
